FAERS Safety Report 24217273 (Version 1)
Quarter: 2024Q3

REPORT INFORMATION
  Report Type: Spontaneous
  Country: US (occurrence: None)
  Receive Date: 20240815
  Receipt Date: 20240815
  Transmission Date: 20241016
  Serious: Yes (Other)
  Sender: Public
  Company Number: None

PATIENT
  Age: 40 Year
  Sex: Female

DRUGS (1)
  1. HADLIMA [Suspect]
     Active Substance: ADALIMUMAB-BWWD
     Indication: Uveitis
     Dosage: OTHER FREQUENCY : EVERY OTHER WEEK;?
     Route: 058
     Dates: start: 20240601

REACTIONS (2)
  - Urinary tract infection [None]
  - Lupus-like syndrome [None]

NARRATIVE: CASE EVENT DATE: 20240815
